FAERS Safety Report 7149235-8 (Version None)
Quarter: 2010Q4

REPORT INFORMATION
  Report Type: 
  Country: None (occurrence: None)
  Receive Date: 20101209
  Receipt Date: 20101206
  Transmission Date: 20110411
  Serious: Yes (Life-Threatening)
  Sender: FDA-Public Use
  Company Number: IT-ASTRAZENECA-2010SE57627

PATIENT
  Age: 20088 Day
  Sex: Female

DRUGS (4)
  1. MARCAINA [Suspect]
     Dosage: 1 DOSAGE UNIT
     Dates: start: 20101129, end: 20101129
  2. DIPRIVAN [Suspect]
     Dosage: 1 DOSAGE UNIT
     Route: 042
     Dates: start: 20101129, end: 20101129
  3. PEFLOX [Suspect]
     Dates: start: 20101129, end: 20101129
  4. TARGOCID [Suspect]
     Dosage: 200 MG/ 3 ML
     Route: 042
     Dates: start: 20101129, end: 20101129

REACTIONS (2)
  - CARDIO-RESPIRATORY ARREST [None]
  - ERYTHEMA [None]
